FAERS Safety Report 5721097-2 (Version None)
Quarter: 2008Q2

REPORT INFORMATION
  Report Type: 
  Country: None (occurrence: None)
  Receive Date: 20080429
  Receipt Date: 20080418
  Transmission Date: 20081010
  Serious: Yes (Life-Threatening, Hospitalization)
  Sender: FDA-Public Use
  Company Number: A0621838A

PATIENT
  Age: 67 Year
  Sex: Male

DRUGS (20)
  1. MELPHALAN [Suspect]
     Indication: MULTIPLE MYELOMA
     Dosage: 221MG CUMULATIVE DOSE
     Dates: start: 20060620, end: 20060621
  2. PALONOSETRON [Suspect]
     Dosage: .25MG PER DAY
     Route: 042
     Dates: start: 20060620, end: 20060622
  3. DEXAMETHASONE [Suspect]
     Indication: MULTIPLE MYELOMA
     Dates: start: 20060620, end: 20060621
  4. HYDROCORTISONE [Concomitant]
     Route: 042
  5. CALCIUM GLUCONATE [Concomitant]
     Dosage: 19.2MEQ PER DAY
     Route: 042
  6. FUROSEMIDE [Concomitant]
     Route: 042
  7. METOPROLOL TARTRATE [Concomitant]
     Dosage: 25MG PER DAY
     Route: 048
  8. DARVON [Concomitant]
  9. CHLORHEXIDINE GLUCONATE [Concomitant]
  10. HYTRIN [Concomitant]
  11. ALLOPURINOL [Concomitant]
  12. EPIVIR-HBV [Concomitant]
  13. LEVAQUIN [Concomitant]
  14. DIFLUCAN [Concomitant]
  15. VALTREX [Concomitant]
  16. PEPCID [Concomitant]
  17. LANTUS [Concomitant]
  18. LOVENOX [Concomitant]
  19. FILGASTRIM [Concomitant]
  20. SENOKOT [Concomitant]

REACTIONS (9)
  - ACUTE RESPIRATORY DISTRESS SYNDROME [None]
  - ACUTE RESPIRATORY FAILURE [None]
  - ASTHENIA [None]
  - DYSPNOEA [None]
  - DYSPNOEA EXERTIONAL [None]
  - OEDEMA PERIPHERAL [None]
  - PNEUMONIA [None]
  - PYREXIA [None]
  - RESPIRATORY DISTRESS [None]
